FAERS Safety Report 7304317-2 (Version None)
Quarter: 2011Q1

REPORT INFORMATION
  Report Type: 
  Country: None (occurrence: None)
  Receive Date: 20110221
  Receipt Date: 20110207
  Transmission Date: 20110831
  Serious: Yes (Hospitalization, Other)
  Sender: FDA-Public Use
  Company Number: US-BAYER-201028004NA

PATIENT
  Sex: Female
  Weight: 58.957 kg

DRUGS (9)
  1. LOVENOX [Concomitant]
  2. IRON [Concomitant]
  3. YAZ [Suspect]
     Indication: CONTRACEPTION
     Route: 048
     Dates: start: 20080201, end: 20080615
  4. COUMADIN [Concomitant]
  5. PROVIGIL [Concomitant]
  6. YASMIN [Suspect]
     Route: 048
     Dates: start: 20080201, end: 20080615
  7. WARFARIN SODIUM [Concomitant]
  8. VITAMIN B-12 [Concomitant]
  9. CYMBALTA [Concomitant]

REACTIONS (2)
  - DEEP VEIN THROMBOSIS [None]
  - PAIN [None]
